FAERS Safety Report 13262766 (Version 1)
Quarter: 2017Q1

REPORT INFORMATION
  Report Type: Report from Study
  Country: US (occurrence: US)
  Receive Date: 20170223
  Receipt Date: 20170223
  Transmission Date: 20170428
  Serious: Yes (Other)
  Sender: FDA-Public Use
  Company Number: US-AMGEN-USASL2017026432

PATIENT
  Age: 65 Year
  Sex: Female

DRUGS (1)
  1. REPATHA [Suspect]
     Active Substance: EVOLOCUMAB
     Indication: BLOOD CHOLESTEROL INCREASED
     Dosage: 140 MG, Q2WK
     Route: 065
     Dates: start: 20170208

REACTIONS (5)
  - Blood pressure increased [Unknown]
  - Dizziness postural [Unknown]
  - Pain in extremity [Unknown]
  - Sinusitis [Unknown]
  - Peritonsillar abscess [Unknown]

NARRATIVE: CASE EVENT DATE: 20170214
